FAERS Safety Report 6139815-0 (Version None)
Quarter: 2009Q2

REPORT INFORMATION
  Report Type: 
  Country: None (occurrence: None)
  Receive Date: 20090401
  Receipt Date: 20090327
  Transmission Date: 20091009
  Serious: Yes (Other)
  Sender: FDA-Public Use
  Company Number: B0567204A

PATIENT
  Age: 27 Year
  Sex: Male
  Weight: 58 kg

DRUGS (4)
  1. EPIVIR [Suspect]
     Indication: HIV INFECTION
     Route: 048
     Dates: start: 20060906
  2. LEXIVA [Suspect]
     Indication: HIV INFECTION
     Route: 048
     Dates: start: 20060906
  3. VIREAD [Suspect]
     Indication: HIV INFECTION
     Route: 048
     Dates: start: 20060906
  4. NORVIR [Suspect]
     Indication: HIV INFECTION
     Route: 048
     Dates: start: 20060906

REACTIONS (6)
  - ABDOMINAL PAIN UPPER [None]
  - APPENDICITIS [None]
  - DIARRHOEA [None]
  - FAECALITH [None]
  - IMMUNE RECONSTITUTION SYNDROME [None]
  - VOMITING [None]
